FAERS Safety Report 25988113 (Version 1)
Quarter: 2025Q4

REPORT INFORMATION
  Report Type: Spontaneous
  Country: CN (occurrence: CN)
  Receive Date: 20251103
  Receipt Date: 20251103
  Transmission Date: 20260117
  Serious: Yes (Hospitalization, Other)
  Sender: Onesource Specialty Pharma
  Company Number: CN-STRIDES ARCOLAB LIMITED-2025OS001070

PATIENT
  Age: 46 Year
  Sex: Male

DRUGS (5)
  1. DICLOFENAC [Suspect]
     Active Substance: DICLOFENAC
     Indication: Gout
     Dosage: FOUND IN TRADITIONAL CHINESE MEDICINE IN PAPER PACKAGE PILL WITH THE CONTENT OF 5.7 MG/G WITH DAILY
     Route: 065
  2. ACETAMINOPHEN [Suspect]
     Active Substance: ACETAMINOPHEN
     Indication: Gout
     Dosage: FOUND IN TRADITIONAL CHINESE MEDICINE IN BAG POWDER WITH THE CONTENT OF 0.4 MG/G WITH DAILY INTAKE O
     Route: 065
  3. SILDENAFIL [Suspect]
     Active Substance: SILDENAFIL
     Indication: Product used for unknown indication
     Dosage: FOUND IN TRADITIONAL CHINESE MEDICINE IN BAG POWDER WITH THE CONTENT OF 2.0 MG/G WITH DAILY INTAKE O
     Route: 065
  4. TADALAFIL [Suspect]
     Active Substance: TADALAFIL
     Indication: Product used for unknown indication
     Dosage: FOUND IN TRADITIONAL CHINESE MEDICINE IN CAPSULE
     Route: 065
  5. TADALAFIL [Suspect]
     Active Substance: TADALAFIL
     Dosage: FOUND IN TRADITIONAL CHINESE MEDICINE IN BAG PACKAGE POWDER
     Route: 065

REACTIONS (8)
  - Cerebral infarction [Unknown]
  - Multiple organ dysfunction syndrome [Unknown]
  - Haemorrhage [Unknown]
  - Hepatic function abnormal [Unknown]
  - Myocardial infarction [Unknown]
  - Toxicity to various agents [Unknown]
  - Overdose [Unknown]
  - Off label use [Unknown]
